FAERS Safety Report 11345566 (Version 1)
Quarter: 2015Q3

REPORT INFORMATION
  Report Type: Spontaneous
  Country: US (occurrence: None)
  Receive Date: 20150805
  Receipt Date: 20150805
  Transmission Date: 20151125
  Serious: No
  Sender: FDA-Public Use
  Company Number: None

PATIENT
  Age: 76 Year
  Sex: Male

DRUGS (2)
  1. GLYCOPYRROLATE. [Suspect]
     Active Substance: GLYCOPYRROLATE
     Route: 042
     Dates: start: 20141211, end: 20141211
  2. OCTREOTIDE. [Suspect]
     Active Substance: OCTREOTIDE
     Route: 030

REACTIONS (3)
  - Cardiac output decreased [None]
  - Cardiac index decreased [None]
  - Hypotension [None]

NARRATIVE: CASE EVENT DATE: 20141211
